FAERS Safety Report 18760387 (Version 1)
Quarter: 2021Q1

REPORT INFORMATION
  Report Type: Report from Study
  Country: None (occurrence: US)
  Receive Date: 20210120
  Receipt Date: 20210120
  Transmission Date: 20210419
  Serious: Yes (Hospitalization, Other)
  Sender: FDA-Public Use
  Company Number: US-MDD US OPERATIONS-MDD202101-000050

PATIENT
  Age: 73 Year
  Sex: Female

DRUGS (5)
  1. ENTACAPONE. [Concomitant]
     Active Substance: ENTACAPONE
     Dosage: NOT PROVIDED
     Dates: start: 2016
  2. CARBIDOPA?LEVODOPA [Concomitant]
     Active Substance: CARBIDOPA\LEVODOPA
     Dosage: NOT PROVIDED
     Dates: start: 2016
  3. APOKYN [Suspect]
     Active Substance: APOMORPHINE HYDROCHLORIDE
     Indication: PARKINSON^S DISEASE
     Route: 058
     Dates: start: 20201211, end: 20201231
  4. VITAMIN?B12 [Concomitant]
     Dosage: NOT PROVIDED
     Dates: start: 2018
  5. AMANTADINE. [Concomitant]
     Active Substance: AMANTADINE HYDROCHLORIDE
     Dosage: NOT PROVIDED
     Dates: start: 2016

REACTIONS (1)
  - Pulmonary embolism [Recovering/Resolving]

NARRATIVE: CASE EVENT DATE: 20201231
